FAERS Safety Report 20367792 (Version 2)
Quarter: 2022Q3

REPORT INFORMATION
  Report Type: Spontaneous
  Country: US (occurrence: US)
  Receive Date: 20220124
  Receipt Date: 20220908
  Transmission Date: 20221026
  Serious: Yes (Other)
  Sender: FDA-Public Use
  Company Number: US-GILEAD-2022-0565861

PATIENT
  Sex: Male
  Weight: 77.098 kg

DRUGS (26)
  1. VIREAD [Suspect]
     Active Substance: TENOFOVIR DISOPROXIL FUMARATE
     Indication: HIV infection
     Dosage: UNK
     Route: 048
     Dates: start: 2001, end: 2004
  2. CRIXIVAN [Concomitant]
     Active Substance: INDINAVIR SULFATE
  3. EPIVIR [Concomitant]
     Active Substance: LAMIVUDINE
  4. INTELENCE [Concomitant]
     Active Substance: ETRAVIRINE
  5. ISENTRESS [Concomitant]
     Active Substance: RALTEGRAVIR POTASSIUM
  6. KALETRA [Concomitant]
     Active Substance: LOPINAVIR\RITONAVIR
  7. NORVIR [Concomitant]
     Active Substance: RITONAVIR
  8. PREZISTA [Concomitant]
     Active Substance: DARUNAVIR ETHANOLATE
  9. RETROVIR [Concomitant]
     Active Substance: ZIDOVUDINE
  10. REYATAZ [Concomitant]
     Active Substance: ATAZANAVIR SULFATE
  11. SUSTIVA [Concomitant]
     Active Substance: EFAVIRENZ
  12. VIDEX [Concomitant]
     Active Substance: DIDANOSINE
  13. VIDEX EC [Concomitant]
     Active Substance: DIDANOSINE
  14. VIRACEPT [Concomitant]
     Active Substance: NELFINAVIR MESYLATE
  15. VIRAMUNE [Concomitant]
     Active Substance: NEVIRAPINE
  16. ZIAGEN [Concomitant]
     Active Substance: ABACAVIR SULFATE
  17. ZERIT [Concomitant]
     Active Substance: STAVUDINE
  18. CHOLECALCIFEROL [Concomitant]
     Active Substance: CHOLECALCIFEROL
  19. ENALAPRIL [Concomitant]
     Active Substance: ENALAPRIL
  20. HYDROXYCHLOROQUINE [Concomitant]
     Active Substance: HYDROXYCHLOROQUINE
  21. INSULIN ASPART [Concomitant]
     Active Substance: INSULIN ASPART
  22. METOPROLOL SUCCINATE [Concomitant]
     Active Substance: METOPROLOL SUCCINATE
  23. VIAGRA [Concomitant]
     Active Substance: SILDENAFIL CITRATE
  24. SULFAMETHOXAZOLE\TRIMETHOPRIM [Concomitant]
     Active Substance: SULFAMETHOXAZOLE\TRIMETHOPRIM
  25. VITAMINS NOS [Concomitant]
     Active Substance: VITAMINS
  26. TOUJEO [Concomitant]
     Active Substance: INSULIN GLARGINE

REACTIONS (12)
  - Chronic kidney disease [Unknown]
  - Renal injury [Unknown]
  - Diabetes mellitus [Unknown]
  - Renal failure [Not Recovered/Not Resolved]
  - Pain [Not Recovered/Not Resolved]
  - Emotional distress [Not Recovered/Not Resolved]
  - Anxiety [Not Recovered/Not Resolved]
  - Anhedonia [Not Recovered/Not Resolved]
  - Blood glucose increased [Not Recovered/Not Resolved]
  - Protein urine present [Unknown]
  - Glomerular filtration rate decreased [Unknown]
  - Blood creatinine increased [Not Recovered/Not Resolved]

NARRATIVE: CASE EVENT DATE: 20030101
